FAERS Safety Report 21846685 (Version 1)
Quarter: 2023Q1

REPORT INFORMATION
  Report Type: Report from Study
  Country: US (occurrence: US)
  Receive Date: 20230111
  Receipt Date: 20230111
  Transmission Date: 20230418
  Serious: No
  Sender: FDA-Public Use
  Company Number: US-ABBVIE-4230585

PATIENT
  Sex: Female

DRUGS (1)
  1. RINVOQ [Suspect]
     Active Substance: UPADACITINIB
     Indication: Rheumatoid arthritis
     Dosage: ER FORM STRENGTH: 15 MG
     Route: 048
     Dates: start: 202209

REACTIONS (2)
  - Back pain [Unknown]
  - Intervertebral disc protrusion [Not Recovered/Not Resolved]
